FAERS Safety Report 20924844 (Version 2)
Quarter: 2022Q3

REPORT INFORMATION
  Report Type: Spontaneous
  Country: JP (occurrence: JP)
  Receive Date: 20220607
  Receipt Date: 20220825
  Transmission Date: 20221026
  Serious: Yes (Hospitalization, Other)
  Sender: FDA-Public Use
  Company Number: JP-PFIZER INC-202200784796

PATIENT
  Age: 72 Year
  Sex: Male
  Weight: 65.9 kg

DRUGS (4)
  1. INLYTA [Suspect]
     Active Substance: AXITINIB
     Indication: Metastatic renal cell carcinoma
     Dosage: 5 MG, 1X/DAY
     Route: 048
     Dates: start: 20211021
  2. INLYTA [Suspect]
     Active Substance: AXITINIB
     Dosage: 5 MG, 2X/DAY
     Route: 048
     Dates: start: 20211118
  3. INLYTA [Suspect]
     Active Substance: AXITINIB
     Dosage: 5 MG, 1X/DAY
     Route: 048
     Dates: start: 20220106
  4. INLYTA [Suspect]
     Active Substance: AXITINIB
     Dosage: 4 MG, DAILY
     Route: 048
     Dates: start: 20220120, end: 20220425

REACTIONS (1)
  - Pneumatosis intestinalis [Recovering/Resolving]

NARRATIVE: CASE EVENT DATE: 20220425
